FAERS Safety Report 7595205-5 (Version None)
Quarter: 2011Q3

REPORT INFORMATION
  Report Type: 
  Country: None (occurrence: None)
  Receive Date: 20110707
  Receipt Date: 20110629
  Transmission Date: 20111222
  Serious: Yes (Hospitalization)
  Sender: FDA-Public Use
  Company Number: US-SANOFI-AVENTIS-2011SA038750

PATIENT
  Sex: Female
  Weight: 64.86 kg

DRUGS (9)
  1. CLONIDINE [Concomitant]
  2. TERAZOSIN HCL [Concomitant]
  3. BENAZEPRIL HYDROCHLORIDE [Concomitant]
     Indication: HYPERTENSION
  4. PACERONE [Concomitant]
     Dosage: HALF OF 200 MG DAILY
  5. LANTUS [Suspect]
     Indication: TYPE 2 DIABETES MELLITUS
     Dosage: 12-14 UNITS
     Route: 058
     Dates: start: 20090101
  6. METOPROLOL TARTRATE [Concomitant]
  7. FUROSEMIDE [Concomitant]
  8. AMLODIPINE [Concomitant]
  9. NOVOLOG [Concomitant]
     Dosage: SLIDING SCALE

REACTIONS (7)
  - CARDIAC FAILURE CONGESTIVE [None]
  - OEDEMA PERIPHERAL [None]
  - HYPERTENSION [None]
  - PANCREATITIS [None]
  - ERYTHEMA [None]
  - DYSPNOEA [None]
  - BLOOD GLUCOSE DECREASED [None]
